FAERS Safety Report 9534154 (Version 3)
Quarter: 2013Q4

REPORT INFORMATION
  Report Type: Spontaneous
  Country: JP (occurrence: JP)
  Receive Date: 20130918
  Receipt Date: 20131211
  Transmission Date: 20140711
  Serious: Yes (Death)
  Sender: FDA-Public Use
  Company Number: JP-ABBVIE-12P-087-0955121-00

PATIENT
  Age: 70 Year
  Sex: Female
  Weight: 43.5 kg

DRUGS (20)
  1. ADALIMUMAB [Suspect]
     Indication: CROHN^S DISEASE
     Route: 058
     Dates: start: 20111005, end: 20111005
  2. ADALIMUMAB [Suspect]
     Dates: start: 20111019, end: 20111019
  3. ADALIMUMAB [Suspect]
     Dates: start: 20111102, end: 20120612
  4. MESALAZINE [Suspect]
     Indication: PRODUCT USED FOR UNKNOWN INDICATION
     Dosage: 3000 MG IN THE MORNING AND 1000 MG IN THE EVENING
     Route: 048
     Dates: start: 200808, end: 20120626
  5. METHOTREXATE [Suspect]
     Indication: PRODUCT USED FOR UNKNOWN INDICATION
     Dosage: 4 MG/WEEK IN TWO DIVIDED DOSES
     Route: 048
  6. PARENTERAL NUTRITION [Concomitant]
     Indication: CROHN^S DISEASE
     Dates: start: 200808
  7. MOSAPRIDE CITRATE [Concomitant]
     Indication: PRODUCT USED FOR UNKNOWN INDICATION
     Route: 048
  8. FERROUS SODIUM CITRATE [Concomitant]
     Indication: ANAEMIA
     Dosage: MORNING AND EVENING
     Route: 048
     Dates: end: 20120626
  9. SENNA EXTRACT [Concomitant]
     Indication: PRODUCT USED FOR UNKNOWN INDICATION
     Dosage: BEFORE BEDTIME
     Route: 048
  10. CELECOXIB [Concomitant]
     Indication: GASTRIC DISORDER
     Dosage: MORNING AND EVENING
     Route: 048
     Dates: end: 20120626
  11. CELECOXIB [Concomitant]
     Indication: PROPHYLAXIS
  12. PRECIPITATED CALCIUM CARBONATE [Concomitant]
     Indication: GASTRIC DISORDER
     Dosage: MORNING, NOON, AND EVENING
     Route: 048
     Dates: end: 20120626
  13. PRECIPITATED CALCIUM CARBONATE [Concomitant]
     Indication: PROPHYLAXIS
  14. PRECIPITATED CALCIUM CARBONATE [Concomitant]
     Indication: PROPHYLAXIS
  15. SWERTIA (HERBAL MEDICINE) [Concomitant]
     Indication: GASTRIC DISORDER
     Dosage: MORNING, NOON, AND EVENING
     Route: 048
     Dates: end: 20120626
  16. SWERTIA (HERBAL MEDICINE) [Concomitant]
     Indication: PROPHYLAXIS
  17. SODIUM BICARBONATE [Concomitant]
     Indication: GASTRIC DISORDER
     Dosage: MORNING, NOON, AND EVENING
     Route: 048
     Dates: end: 20120626
  18. SODIUM BICARBONATE [Concomitant]
     Indication: PROPHYLAXIS
  19. DIASTASE [Concomitant]
     Indication: GASTRIC DISORDER
     Dosage: MORNING, NOON, AND EVENING
     Route: 048
     Dates: end: 20120626
  20. DIASTASE [Concomitant]
     Indication: PROPHYLAXIS

REACTIONS (3)
  - Endocarditis [Fatal]
  - Cardiac failure acute [Fatal]
  - Crohn^s disease [Unknown]
